FAERS Safety Report 6516198-5 (Version None)
Quarter: 2009Q4

REPORT INFORMATION
  Report Type: 
  Country: None (occurrence: None)
  Receive Date: 20091223
  Receipt Date: 20091214
  Transmission Date: 20100525
  Serious: Yes (Other)
  Sender: FDA-Public Use
  Company Number: DE-WATSON-2009-10761

PATIENT
  Age: 73 Year

DRUGS (1)
  1. CLINDAMYCIN HYDROCHLORIDE [Suspect]
     Indication: SURGERY
     Dosage: 300 MG, TID
     Route: 048

REACTIONS (1)
  - VASCULITIS NECROTISING [None]
